FAERS Safety Report 19073980 (Version 2)
Quarter: 2021Q3

REPORT INFORMATION
  Report Type: Spontaneous
  Country: US (occurrence: US)
  Receive Date: 20210330
  Receipt Date: 20210825
  Transmission Date: 20211014
  Serious: Yes (Other)
  Sender: FDA-Public Use
  Company Number: US-PURDUE-USA-2020-0218098

PATIENT
  Sex: Female

DRUGS (2)
  1. OXYCONTIN [Suspect]
     Active Substance: OXYCODONE HYDROCHLORIDE
     Indication: LOCALISED INFECTION
     Dosage: UNKNOWN
     Route: 048
     Dates: start: 20140120
  2. DILAUDID [Suspect]
     Active Substance: HYDROMORPHONE HYDROCHLORIDE
     Indication: LOCALISED INFECTION
     Dosage: UNKNOWN
     Route: 048
     Dates: start: 20140120

REACTIONS (1)
  - Drug dependence [Unknown]
